FAERS Safety Report 8683123 (Version 3)
Quarter: 2013Q4

REPORT INFORMATION
  Report Type: Spontaneous
  Country: CO (occurrence: CO)
  Receive Date: 20120725
  Receipt Date: 20131031
  Transmission Date: 20140711
  Serious: Yes (Other)
  Sender: FDA-Public Use
  Company Number: CO-009507513-1207COL008406

PATIENT
  Sex: Female

DRUGS (1)
  1. FOSAPREPITANT DIMEGLUMINE [Suspect]

REACTIONS (1)
  - Anaphylactic shock [Unknown]
